FAERS Safety Report 23600421 (Version 2)
Quarter: 2024Q2

REPORT INFORMATION
  Report Type: Spontaneous
  Country: KR (occurrence: KR)
  Receive Date: 20240306
  Receipt Date: 20240415
  Transmission Date: 20240716
  Serious: No
  Sender: FDA-Public Use
  Company Number: KR-PFIZER INC-PV202400010364

PATIENT
  Age: 12 Year
  Sex: Female

DRUGS (1)
  1. GENOTROPIN [Suspect]
     Active Substance: SOMATROPIN
     Indication: Short stature
     Dosage: 4.5 IU
     Dates: start: 20231213

REACTIONS (2)
  - Wrong technique in device usage process [Unknown]
  - Injection site pain [Unknown]
